FAERS Safety Report 9886265 (Version 3)
Quarter: 2014Q1

REPORT INFORMATION
  Report Type: Report from Study
  Country: AR (occurrence: AR)
  Receive Date: 20140210
  Receipt Date: 20140213
  Transmission Date: 20141002
  Serious: Yes (Other)
  Sender: FDA-Public Use
  Company Number: PHHO2014AR000917

PATIENT
  Sex: 0

DRUGS (4)
  1. ALISKIREN [Suspect]
     Indication: CARDIAC FAILURE
     Dosage: UNK
     Route: 048
     Dates: start: 20100615, end: 20131122
  2. BISOPROLOL [Concomitant]
     Indication: CARDIAC FAILURE
     Dosage: 100 MG, BID
     Dates: start: 20080205
  3. SPIRONOLACTONE [Concomitant]
     Indication: CARDIAC FAILURE
     Dosage: 25 MG, ^D^
     Dates: start: 20080205
  4. FUROSEMIDE [Concomitant]
     Indication: CARDIAC FAILURE
     Dosage: 40 MG, ^D^
     Dates: start: 20080205

REACTIONS (1)
  - Diabetes mellitus [Not Recovered/Not Resolved]
